FAERS Safety Report 7088943-4 (Version None)
Quarter: 2010Q4

REPORT INFORMATION
  Report Type: 
  Country: None (occurrence: None)
  Receive Date: 20101108
  Receipt Date: 20101028
  Transmission Date: 20110411
  Serious: Yes (Hospitalization, Other)
  Sender: FDA-Public Use
  Company Number: FR-JNJFOC-20101001031

PATIENT
  Age: 21 Year
  Sex: Female

DRUGS (1)
  1. REMICADE [Suspect]
     Indication: COLITIS ULCERATIVE
     Dosage: ALSO REPORTED AS INITIATED IN ^2006 OR 2008^
     Route: 042

REACTIONS (4)
  - ANTIPHOSPHOLIPID ANTIBODIES POSITIVE [None]
  - ARTHRALGIA [None]
  - KAOLIN CEPHALIN CLOTTING TIME PROLONGED [None]
  - SKIN PLAQUE [None]
